FAERS Safety Report 5032269-7 (Version None)
Quarter: 2006Q2

REPORT INFORMATION
  Report Type: 
  Country: None (occurrence: None)
  Receive Date: 20060619
  Receipt Date: 20060609
  Transmission Date: 20061013
  Serious: Yes (Other)
  Sender: FDA-Public Use
  Company Number: 2006-04-0947

PATIENT
  Age: 60 Year
  Sex: Male
  Weight: 77.1115 kg

DRUGS (7)
  1. PEG-INTRON [Suspect]
     Indication: HEPATITIS C
     Dosage: 150 MCG QWK SUBCUTANEOUS
     Route: 058
     Dates: start: 20060205, end: 20060419
  2. RIBASPHERE [Concomitant]
     Indication: HEPATITIS C
     Dosage: 1000 MG QD ORAL
     Route: 048
     Dates: start: 20060205, end: 20060419
  3. LACTULOSE [Concomitant]
  4. NEOMYCIN SULFATE [Concomitant]
  5. PROTONIX [Concomitant]
  6. TIZANIDINE HYDROCHLORIDE [Concomitant]
  7. VICODIN [Concomitant]

REACTIONS (11)
  - ANAEMIA [None]
  - ANOREXIA [None]
  - ASTHENIA [None]
  - BACK PAIN [None]
  - CYSTITIS [None]
  - DRUG INEFFECTIVE [None]
  - HAEMATURIA [None]
  - HEPATIC ENCEPHALOPATHY [None]
  - HYPERAMMONAEMIA [None]
  - INCOHERENT [None]
  - NAUSEA [None]
